FAERS Safety Report 11150775 (Version 1)
Quarter: 2015Q2

REPORT INFORMATION
  Report Type: Spontaneous
  Country: GB (occurrence: GB)
  Receive Date: 20150601
  Receipt Date: 20150601
  Transmission Date: 20150821
  Serious: Yes (Other)
  Sender: FDA-Public Use
  Company Number: GB-INDICUS PHARMA-000334

PATIENT
  Age: 18 Year
  Sex: Female

DRUGS (3)
  1. SIBUTRAMINE/SIBUTRAMINE HYDROCHLORIDE [Concomitant]
     Indication: WEIGHT CONTROL
  2. METFORMIN [Suspect]
     Active Substance: METFORMIN HYDROCHLORIDE
     Indication: WEIGHT CONTROL
  3. ORLISTAT [Concomitant]
     Active Substance: ORLISTAT
     Indication: WEIGHT CONTROL

REACTIONS (1)
  - Pain [Unknown]
